FAERS Safety Report 4657006-7 (Version None)
Quarter: 2005Q2

REPORT INFORMATION
  Report Type: 
  Country: None (occurrence: None)
  Receive Date: 20050509
  Receipt Date: 20050428
  Transmission Date: 20051028
  Serious: Yes (Other)
  Sender: FDA-Public Use
  Company Number: GB-MERCK-0505GBR00006

PATIENT
  Sex: Male
  Weight: 67 kg

DRUGS (6)
  1. INDOCIN I.V. [Suspect]
     Indication: PATENT DUCTUS ARTERIOSUS
     Route: 042
     Dates: start: 20040708, end: 20040708
  2. VANCOMYCIN [Suspect]
     Indication: INFECTION
     Route: 042
     Dates: start: 20040706, end: 20040706
  3. VANCOMYCIN [Suspect]
     Route: 042
     Dates: start: 20040707, end: 20040708
  4. ZIDOVUDINE [Concomitant]
     Indication: PROPHYLAXIS AGAINST HIV INFECTION
     Route: 065
     Dates: start: 20040707, end: 20040723
  5. CEFOTAXIME SODIUM [Concomitant]
     Indication: INFECTION
     Route: 065
     Dates: start: 20040703, end: 20040714
  6. FLUCONAZOLE [Concomitant]
     Indication: INFECTION PROPHYLAXIS
     Route: 065
     Dates: start: 20040702

REACTIONS (5)
  - BLOOD CREATININE INCREASED [None]
  - BLOOD UREA INCREASED [None]
  - DRUG INTERACTION [None]
  - DRUG LEVEL INCREASED [None]
  - URINE OUTPUT DECREASED [None]
